FAERS Safety Report 9661267 (Version 1)
Quarter: 2013Q4

REPORT INFORMATION
  Report Type: Report from Study
  Country: KZ (occurrence: KZ)
  Receive Date: 20131031
  Receipt Date: 20131031
  Transmission Date: 20140711
  Serious: Yes (Other)
  Sender: FDA-Public Use
  Company Number: KZ-VERTEX PHARMACEUTICALS INC-2013-010793

PATIENT
  Age: 53 Year
  Sex: Female
  Weight: 85 kg

DRUGS (3)
  1. VX-950 (TELAPREVIR) [Suspect]
     Indication: HEPATITIS C
     Dosage: 375 MG, UNK
     Dates: start: 20130809
  2. RIBAVIRIN [Concomitant]
     Dosage: DOSAGE FORM: TABLET
     Route: 048
  3. PEGINTERFERON ALFA [Concomitant]
     Indication: CHRONIC HEPATITIS C
     Dosage: DOSAGE FORM: INJECTION
     Route: 058

REACTIONS (4)
  - Cough [Not Recovered/Not Resolved]
  - Leukopenia [Not Recovered/Not Resolved]
  - Anaemia [Not Recovered/Not Resolved]
  - Thrombocytopenia [Not Recovered/Not Resolved]
